FAERS Safety Report 7105939-4 (Version None)
Quarter: 2010Q4

REPORT INFORMATION
  Report Type: 
  Country: None (occurrence: None)
  Receive Date: 20101116
  Receipt Date: 20101104
  Transmission Date: 20110411
  Serious: Yes (Other)
  Sender: FDA-Public Use
  Company Number: NL-MEDIMMUNE-MEDI-0011777

PATIENT
  Sex: Male
  Weight: 6.5 kg

DRUGS (5)
  1. SYNAGIS [Suspect]
     Route: 051
     Dates: start: 20101004, end: 20101004
  2. SYNAGIS [Suspect]
     Route: 051
     Dates: start: 20101104, end: 20101104
  3. COFFEINE [Concomitant]
     Dates: start: 20100101
  4. DOMPERIDONE [Concomitant]
     Dates: start: 20100101
  5. ESOMEPRAZOLE MAGNESIUM [Concomitant]
     Dates: start: 20100101

REACTIONS (2)
  - INFANTILE APNOEIC ATTACK [None]
  - RESPIRATORY ARREST [None]
